FAERS Safety Report 14946315 (Version 4)
Quarter: 2018Q4

REPORT INFORMATION
  Report Type: Spontaneous
  Country: US (occurrence: US)
  Receive Date: 20180529
  Receipt Date: 20181129
  Transmission Date: 20190204
  Serious: No
  Sender: FDA-Public Use
  Company Number: US-SA-2018SA143538

PATIENT
  Age: 41 Year
  Sex: Male

DRUGS (1)
  1. DUPIXENT [Suspect]
     Active Substance: DUPILUMAB
     Indication: DERMATITIS ATOPIC
     Dosage: 300 MG, QOW
     Route: 058
     Dates: start: 20180428

REACTIONS (5)
  - Pruritus [Unknown]
  - Erythema [Unknown]
  - Dermatitis [Unknown]
  - Photosensitivity reaction [Unknown]
  - Swelling face [Unknown]

NARRATIVE: CASE EVENT DATE: 20180522
